FAERS Safety Report 8201703-3 (Version None)
Quarter: 2012Q1

REPORT INFORMATION
  Report Type: 
  Country: None (occurrence: None)
  Receive Date: 20120312
  Receipt Date: 20120305
  Transmission Date: 20120608
  Serious: Yes (Other)
  Sender: FDA-Public Use
  Company Number: JP-PFIZER INC-2012048791

PATIENT
  Age: 60 Year
  Sex: Male

DRUGS (1)
  1. ZYVOX [Suspect]
     Route: 065

REACTIONS (2)
  - VISUAL IMPAIRMENT [None]
  - INTERSTITIAL LUNG DISEASE [None]
